FAERS Safety Report 4687828-8 (Version None)
Quarter: 2005Q2

REPORT INFORMATION
  Report Type: 
  Country: None (occurrence: None)
  Receive Date: 20050610
  Receipt Date: 20050610
  Transmission Date: 20051028
  Serious: Yes (Hospitalization)
  Sender: FDA-Public Use
  Company Number: None

PATIENT
  Age: 76 Year
  Sex: Male
  Weight: 93.4 kg

DRUGS (15)
  1. HEPARIN [Suspect]
     Indication: THROMBOSIS PROPHYLAXIS
     Dosage: 5000 UNITS  Q12H   SUBCUTANEO
     Route: 058
     Dates: start: 20050301, end: 20050316
  2. ZOSYN [Suspect]
     Indication: INFECTION
     Dosage: 3.375MG   Q6H    INTERVENOU
     Route: 042
     Dates: start: 20050310, end: 20050315
  3. ALBUTEROL [Concomitant]
  4. BISACODYL [Concomitant]
  5. CHLORPROMAZINE [Concomitant]
  6. DILTIAZEM [Concomitant]
  7. DOCUSATE [Concomitant]
  8. ERYTHROMYCIN [Concomitant]
  9. FAT EMULSION [Concomitant]
  10. HUMULIN R [Concomitant]
  11. IPRATROPIUM BROMIDE [Concomitant]
  12. LISINOPRIL [Concomitant]
  13. METOCLOPRAMIDE [Concomitant]
  14. METOPROLOL [Concomitant]
  15. RANITIDINE [Concomitant]

REACTIONS (1)
  - THROMBOCYTOPENIA [None]
